FAERS Safety Report 25465364 (Version 2)
Quarter: 2025Q2

REPORT INFORMATION
  Report Type: Report from Study
  Country: US (occurrence: US)
  Receive Date: 20250622
  Receipt Date: 20250626
  Transmission Date: 20250717
  Serious: Yes (Other)
  Sender: ABBVIE
  Company Number: US-ABBVIE-6336314

PATIENT
  Age: 53 Year
  Sex: Female
  Weight: 80.73 kg

DRUGS (1)
  1. CREON [Suspect]
     Active Substance: PANCRELIPASE AMYLASE\PANCRELIPASE LIPASE\PANCRELIPASE PROTEASE
     Indication: Irritable bowel syndrome
     Route: 048
     Dates: start: 20240902

REACTIONS (5)
  - Pneumothorax [Recovered/Resolved]
  - Oropharyngeal pain [Recovered/Resolved]
  - Lacrimation increased [Recovered/Resolved]
  - Pneumonia [Unknown]
  - Rhinorrhoea [Recovered/Resolved]

NARRATIVE: CASE EVENT DATE: 20250521
